FAERS Safety Report 4938584-7 (Version None)
Quarter: 2006Q1

REPORT INFORMATION
  Report Type: 
  Country: None (occurrence: None)
  Receive Date: 20060306
  Receipt Date: 20060220
  Transmission Date: 20060701
  Serious: Yes (Hospitalization)
  Sender: FDA-Public Use
  Company Number: US200602004094

PATIENT
  Age: 81 Year
  Sex: Female

DRUGS (2)
  1. FORTEO [Suspect]
     Dosage: UNK
     Route: 065
     Dates: start: 20041001
  2. FORTEO PEN (FORTEO PEN) [Concomitant]

REACTIONS (4)
  - ARTHRALGIA [None]
  - BONE DENSITY DECREASED [None]
  - BONE DISORDER [None]
  - PHARMACEUTICAL PRODUCT COMPLAINT [None]
